FAERS Safety Report 8857578 (Version 2)
Quarter: 2013Q2

REPORT INFORMATION
  Report Type: Spontaneous
  Country: US (occurrence: US)
  Receive Date: 20121024
  Receipt Date: 20130614
  Transmission Date: 20140414
  Serious: Yes (Other)
  Sender: FDA-Public Use
  Company Number: CHPA2012US022144

PATIENT
  Age: 75 Year
  Sex: Male

DRUGS (1)
  1. MAALOX ADV MAXIMUM STRENGTH ANTACID/ANTIGAS [Suspect]
     Indication: DYSPEPSIA
     Dosage: A SWIG, ONCE PER WEEK
     Route: 048
     Dates: end: 201212

REACTIONS (4)
  - Parkinson^s disease [Not Recovered/Not Resolved]
  - Cholelithiasis [Recovered/Resolved]
  - Tremor [Not Recovered/Not Resolved]
  - Wrong technique in drug usage process [Unknown]
